FAERS Safety Report 8312876-6 (Version None)
Quarter: 2012Q2

REPORT INFORMATION
  Report Type: 
  Country: None (occurrence: None)
  Receive Date: 20120426
  Receipt Date: 20120423
  Transmission Date: 20120825
  Serious: No
  Sender: FDA-Public Use
  Company Number: US-PFIZER INC-2012101064

PATIENT
  Sex: Female
  Weight: 63 kg

DRUGS (1)
  1. PRISTIQ [Suspect]
     Indication: DEPRESSION
     Dosage: UNK, DAILY
     Dates: start: 20120422

REACTIONS (2)
  - MIGRAINE [None]
  - DRUG INEFFECTIVE [None]
